FAERS Safety Report 11664180 (Version 1)
Quarter: 2015Q4

REPORT INFORMATION
  Report Type: Spontaneous
  Country: US (occurrence: None)
  Receive Date: 20151026
  Receipt Date: 20151026
  Transmission Date: 20160304
  Serious: No
  Sender: FDA-Public Use
  Company Number: None

PATIENT
  Age: 50 Year
  Sex: Female
  Weight: 79.38 kg

DRUGS (6)
  1. TIZANIDINE 4 MG DR. REDDY^S LABS [Suspect]
     Active Substance: TIZANIDINE
     Indication: MIGRAINE
     Dosage: 1 PILL ONCE DAILY TAKEN BY MOUTH
     Route: 048
     Dates: start: 20150901, end: 20150905
  2. PROBIOTICS [Concomitant]
     Active Substance: PROBIOTICS NOS
  3. CLARITIN [Concomitant]
     Active Substance: LORATADINE
  4. TIZANIDINE 4 MG DR. REDDY^S LABS [Suspect]
     Active Substance: TIZANIDINE
     Indication: MUSCLE TIGHTNESS
     Dosage: 1 PILL ONCE DAILY TAKEN BY MOUTH
     Route: 048
     Dates: start: 20150901, end: 20150905
  5. ATENOLOL. [Concomitant]
     Active Substance: ATENOLOL
  6. METOCLOPRIMIDE [Concomitant]

REACTIONS (2)
  - Middle insomnia [None]
  - Hallucination, visual [None]

NARRATIVE: CASE EVENT DATE: 20150901
